FAERS Safety Report 8174751-X (Version None)
Quarter: 2012Q1

REPORT INFORMATION
  Report Type: 
  Country: None (occurrence: None)
  Receive Date: 20120229
  Receipt Date: 20120223
  Transmission Date: 20120608
  Serious: Yes (Other)
  Sender: FDA-Public Use
  Company Number: DE-GLAXOSMITHKLINE-D0074602A

PATIENT
  Age: 21 Year
  Sex: Male

DRUGS (1)
  1. VOTRIENT [Suspect]
     Indication: SYNOVIAL SARCOMA METASTATIC
     Route: 048
     Dates: start: 20111213

REACTIONS (6)
  - SLEEP DISORDER [None]
  - CONFUSIONAL STATE [None]
  - LOSS OF CONSCIOUSNESS [None]
  - MIDDLE INSOMNIA [None]
  - INITIAL INSOMNIA [None]
  - DISORIENTATION [None]
